FAERS Safety Report 13648028 (Version 3)
Quarter: 2017Q3

REPORT INFORMATION
  Report Type: Spontaneous
  Country: MY (occurrence: MY)
  Receive Date: 20170613
  Receipt Date: 20170915
  Transmission Date: 20171127
  Serious: Yes (Other)
  Sender: FDA-Public Use
  Company Number: MY-PFIZER INC-2015004996

PATIENT
  Age: 68 Year
  Sex: Female

DRUGS (2)
  1. GEMCITABINE HYDROCHLORIDE. [Suspect]
     Active Substance: GEMCITABINE HYDROCHLORIDE
     Indication: MYCOSIS FUNGOIDES
     Dosage: 1000 MG/M2, CYCLIC (ON DAYS 1 AND 8, FOLLOWED BY A 2-WEEK BREAK)
     Route: 042
  2. VINORELBINE TARTRATE. [Suspect]
     Active Substance: VINORELBINE TARTRATE
     Indication: MYCOSIS FUNGOIDES
     Dosage: 40 MG, CYCLIC (ON DAYS 1 AND 8, FOLLOWED BY A 2 WEEKS BREAK)
     Route: 042

REACTIONS (1)
  - Hepatitis acute [Unknown]
